FAERS Safety Report 9462313 (Version 1)
Quarter: 2013Q3

REPORT INFORMATION
  Report Type: Report from Study
  Country: US (occurrence: US)
  Receive Date: 20130816
  Receipt Date: 20130816
  Transmission Date: 20140515
  Serious: Yes (Hospitalization)
  Sender: FDA-Public Use
  Company Number: US-ABBOTT-13P-163-1131283-00

PATIENT
  Sex: Female
  Weight: 99 kg

DRUGS (1)
  1. HUMIRA [Suspect]
     Indication: RHEUMATOID ARTHRITIS
     Dates: start: 201208, end: 201304

REACTIONS (5)
  - Organ failure [Recovered/Resolved]
  - Fluid retention [Recovered/Resolved]
  - Breast swelling [Recovered/Resolved]
  - Fungal skin infection [Recovered/Resolved]
  - Fungal skin infection [Recovered/Resolved]
